FAERS Safety Report 5575243-4 (Version None)
Quarter: 2007Q4

REPORT INFORMATION
  Report Type: 
  Country: None (occurrence: None)
  Receive Date: 20071227
  Receipt Date: 20071218
  Transmission Date: 20080405
  Serious: Yes (Life-Threatening, Disabling)
  Sender: FDA-Public Use
  Company Number: GB-PFIZER INC-2007106789

PATIENT
  Age: 58 Year
  Sex: Male

DRUGS (13)
  1. CHANTIX [Suspect]
     Indication: SMOKING CESSATION THERAPY
     Dosage: TEXT:1MG BID EVERY DAY TDD:2MG
     Route: 048
     Dates: start: 20071104, end: 20071120
  2. ASPIRIN [Concomitant]
  3. BUDESONIDE [Concomitant]
  4. FLUTICASONE PROPIONATE [Concomitant]
  5. FUROSEMIDE [Concomitant]
  6. IPRATROPIUM BROMIDE [Concomitant]
  7. MONTELUKAST SODIUM [Concomitant]
  8. ACETAMINOPHEN [Concomitant]
  9. RAMIPRIL [Concomitant]
  10. ALBUTEROL [Concomitant]
  11. SALMETEROL [Concomitant]
  12. SIMVASTATIN [Concomitant]
  13. TESTOSTERONE [Concomitant]

REACTIONS (1)
  - SWOLLEN TONGUE [None]
